FAERS Safety Report 5406862-3 (Version None)
Quarter: 2007Q3

REPORT INFORMATION
  Report Type: 
  Country: None (occurrence: None)
  Receive Date: 20070807
  Receipt Date: 20070723
  Transmission Date: 20080115
  Serious: Yes (Other)
  Sender: FDA-Public Use
  Company Number: US-ELI_LILLY_AND_COMPANY-US200706005136

PATIENT
  Age: 48 Year
  Sex: Female
  Weight: 108 kg

DRUGS (4)
  1. CYMBALTA [Suspect]
     Indication: DEPRESSION
     Dosage: 60 MG, DAILY (1/D)
     Dates: start: 20050101, end: 20070501
  2. CYMBALTA [Suspect]
     Dosage: 60 MG, DAILY (1/D)
     Dates: start: 20070601
  3. LIPITOR [Concomitant]
  4. ORTHO TRI-CYCLEN [Concomitant]

REACTIONS (1)
  - GASTRIC BYPASS [None]
